FAERS Safety Report 13701401 (Version 1)
Quarter: 2017Q2

REPORT INFORMATION
  Report Type: Spontaneous
  Country: JP (occurrence: JP)
  Receive Date: 20170629
  Receipt Date: 20170629
  Transmission Date: 20170830
  Serious: Yes (Death)
  Sender: FDA-Public Use
  Company Number: JP-CELGENEUS-JPN-20170607321

PATIENT
  Age: 84 Year
  Sex: Female

DRUGS (5)
  1. VIDAZA [Suspect]
     Active Substance: AZACITIDINE
     Indication: ACUTE MYELOID LEUKAEMIA
     Dosage: 75 MILLIGRAM/SQ. METER
     Route: 065
     Dates: start: 201401
  2. METHOTREXATE. [Suspect]
     Active Substance: METHOTREXATE
     Indication: RHEUMATOID ARTHRITIS
     Dosage: LOW DOSE (6-10 MG, ADJUSTED BY CLINICAL AND LABORATORY FINDINGS, DIVIDED INTO 2 OR 3 DOSES ORALLY EV
     Route: 048
     Dates: start: 2004, end: 201008
  3. PREDNISOLONE. [Concomitant]
     Active Substance: PREDNISOLONE
     Indication: RHEUMATOID ARTHRITIS
     Route: 065
     Dates: start: 2004
  4. METENOLONE [Concomitant]
     Active Substance: METHENOLONE ENANTHATE
     Indication: ANAEMIA
     Dosage: 15 MILLIGRAM
     Route: 048
     Dates: start: 201310
  5. CYTARABINE. [Concomitant]
     Active Substance: CYTARABINE
     Indication: ACUTE MYELOID LEUKAEMIA
     Dosage: LOW-DOSE
     Route: 065

REACTIONS (2)
  - Acute myeloid leukaemia [Fatal]
  - Cytopenia [Unknown]

NARRATIVE: CASE EVENT DATE: 201407
